FAERS Safety Report 4657757-4 (Version None)
Quarter: 2005Q2

REPORT INFORMATION
  Report Type: 
  Country: None (occurrence: None)
  Receive Date: 20050510
  Receipt Date: 20050502
  Transmission Date: 20051028
  Serious: Yes (Other)
  Sender: FDA-Public Use
  Company Number: 200513868GDDC

PATIENT
  Age: 30 Year
  Sex: Male

DRUGS (2)
  1. ALLEGRA [Suspect]
     Indication: RHINITIS ALLERGIC
     Route: 048
     Dates: start: 20050301
  2. CLARITIN REDITABS [Suspect]
     Indication: RHINITIS ALLERGIC
     Route: 048
     Dates: start: 20050321, end: 20050330

REACTIONS (2)
  - EPILEPSY [None]
  - LOSS OF CONSCIOUSNESS [None]
